FAERS Safety Report 25511074 (Version 1)
Quarter: 2025Q3

REPORT INFORMATION
  Report Type: Spontaneous
  Country: US (occurrence: US)
  Receive Date: 20250703
  Receipt Date: 20250703
  Transmission Date: 20251020
  Serious: No
  Sender: RADIUS PHARM
  Company Number: US-RADIUS HEALTH INC.-2024US006430

PATIENT
  Sex: Female

DRUGS (2)
  1. TYMLOS [Suspect]
     Active Substance: ABALOPARATIDE
     Indication: Osteoporosis postmenopausal
  2. TYMLOS [Suspect]
     Active Substance: ABALOPARATIDE
     Dates: start: 20240802

REACTIONS (6)
  - Insomnia [Unknown]
  - Intentional dose omission [Unknown]
  - Palpitations [Recovered/Resolved]
  - Tension headache [Unknown]
  - Arthralgia [Unknown]
  - Injection site bruising [Recovering/Resolving]
